FAERS Safety Report 14680790 (Version 1)
Quarter: 2018Q1

REPORT INFORMATION
  Report Type: Spontaneous
  Country: JP (occurrence: JP)
  Receive Date: 20180326
  Receipt Date: 20180326
  Transmission Date: 20180509
  Serious: Yes (Hospitalization, Other)
  Sender: FDA-Public Use
  Company Number: JP-GLAXOSMITHKLINE-JP2018JPN046035

PATIENT
  Age: 49 Year
  Sex: Male

DRUGS (3)
  1. PREZCOBIX [Concomitant]
     Active Substance: COBICISTAT\DARUNAVIR ETHANOLATE
     Indication: HIV INFECTION
     Dosage: UNK
  2. SERETIDE [Suspect]
     Active Substance: FLUTICASONE PROPIONATE\SALMETEROL XINAFOATE
     Indication: ASTHMA
     Dosage: UNK
     Route: 055
  3. ISENTRESS [Concomitant]
     Active Substance: RALTEGRAVIR POTASSIUM
     Indication: HIV INFECTION
     Dosage: UNK

REACTIONS (11)
  - Back pain [Unknown]
  - Kaposi^s sarcoma [Unknown]
  - Nodule [Unknown]
  - Papule [Unknown]
  - Spinal compression fracture [Unknown]
  - Loss of personal independence in daily activities [Unknown]
  - Oedema peripheral [Unknown]
  - Hypopituitarism [Unknown]
  - Central obesity [Unknown]
  - Cushingoid [Unknown]
  - Oedema [Unknown]
